FAERS Safety Report 4954577-8 (Version None)
Quarter: 2006Q1

REPORT INFORMATION
  Report Type: 
  Country: None (occurrence: None)
  Receive Date: 20060322
  Receipt Date: 20060310
  Transmission Date: 20060701
  Serious: Yes (Life-Threatening, Hospitalization, Disabling)
  Sender: FDA-Public Use
  Company Number: 2006MP000225

PATIENT
  Age: 57 Year
  Sex: Male

DRUGS (5)
  1. AGGRASTAT [Suspect]
     Indication: ANGINA UNSTABLE
     Dosage: 0.4 UG/KG/MIN; IV
     Route: 042
     Dates: start: 20060211, end: 20060211
  2. AGGRASTAT [Suspect]
     Indication: ANGINA UNSTABLE
     Dosage: 0.1 UG/KG/MIN; IV
     Route: 042
     Dates: start: 20060211, end: 20060213
  3. ASPIRIN [Concomitant]
  4. HEPARIN LOW MOLECULAR [Concomitant]
  5. WEIGHT INSULIN [Concomitant]

REACTIONS (4)
  - CARDIOGENIC SHOCK [None]
  - CEREBROVASCULAR ACCIDENT [None]
  - CORONARY ARTERY STENOSIS [None]
  - MYOCARDIAL INFARCTION [None]
